FAERS Safety Report 10009184 (Version 1)
Quarter: 2014Q1

REPORT INFORMATION
  Report Type: Spontaneous
  Country: US (occurrence: US)
  Receive Date: 20140313
  Receipt Date: 20140313
  Transmission Date: 20141002
  Serious: No
  Sender: FDA-Public Use
  Company Number: US-GILEAD-2013-0071004

PATIENT
  Sex: Female

DRUGS (3)
  1. LETAIRIS [Suspect]
     Indication: PRODUCT USED FOR UNKNOWN INDICATION
     Dosage: 10 MG, QD
     Dates: start: 20090221
  2. TYVASO [Concomitant]
  3. ADCIRCA [Concomitant]

REACTIONS (3)
  - Chest pain [Unknown]
  - Diarrhoea [Unknown]
  - Dyspnoea [Unknown]
